FAERS Safety Report 4985783-4 (Version None)
Quarter: 2006Q2

REPORT INFORMATION
  Report Type: 
  Country: None (occurrence: None)
  Receive Date: 20060428
  Receipt Date: 20060301
  Transmission Date: 20061013
  Serious: Yes (Life-Threatening)
  Sender: FDA-Public Use
  Company Number: PHBS2006JP03359

PATIENT
  Sex: Female

DRUGS (3)
  1. SANDIMMUNE [Suspect]
     Indication: HEPATITIS FULMINANT
     Dosage: 3-4 MG/KG/DAY
     Route: 041
     Dates: start: 20051101, end: 20060201
  2. ZEFFIX [Suspect]
     Indication: HEPATITIS FULMINANT
     Dates: start: 20051101, end: 20060201
  3. STEROIDS NOS [Suspect]
     Dates: start: 20051101

REACTIONS (5)
  - APLASTIC ANAEMIA [None]
  - CYTOMEGALOVIRUS INFECTION [None]
  - RED BLOOD CELL COUNT DECREASED [None]
  - THROMBOCYTOPENIA [None]
  - WHITE BLOOD CELL COUNT DECREASED [None]
